FAERS Safety Report 9037986 (Version 1)
Quarter: 2013Q1

REPORT INFORMATION
  Report Type: Report from Study
  Country: US (occurrence: US)
  Receive Date: 20130129
  Receipt Date: 20130129
  Transmission Date: 20140127
  Serious: No
  Sender: FDA-Public Use
  Company Number: US-ABBOTT-12P-163-0921544-00

PATIENT
  Age: 57 Year
  Sex: Male

DRUGS (4)
  1. HUMIRA 40 MG/0.8 ML PEN [Suspect]
     Indication: PSORIASIS
     Dates: start: 20120113
  2. EXFORGE HCT [Concomitant]
     Indication: PRODUCT USED FOR UNKNOWN INDICATION
     Dosage: 5/160/25MG
  3. LIPITOR [Concomitant]
     Indication: PRODUCT USED FOR UNKNOWN INDICATION
  4. TOPICAL CREAM(S) [Concomitant]
     Indication: PSORIASIS
     Dosage: WHEN AVAILABLE
     Route: 061

REACTIONS (8)
  - Skin tightness [Not Recovered/Not Resolved]
  - Pain of skin [Not Recovered/Not Resolved]
  - Oedema peripheral [Recovering/Resolving]
  - Psoriasis [Not Recovered/Not Resolved]
  - Pruritus generalised [Recovering/Resolving]
  - Blood pressure increased [Unknown]
  - Stress [Unknown]
  - Erythema [Not Recovered/Not Resolved]
